FAERS Safety Report 5576636-1 (Version None)
Quarter: 2007Q4

REPORT INFORMATION
  Report Type: 
  Country: None (occurrence: None)
  Receive Date: 20071228
  Receipt Date: 20071221
  Transmission Date: 20080405
  Serious: Yes (Other)
  Sender: FDA-Public Use
  Company Number: US-ASTRAZENECA-2007UW20448

PATIENT
  Age: 39 Year
  Sex: Female
  Weight: 90.9 kg

DRUGS (5)
  1. SEROQUEL [Suspect]
     Indication: ANXIETY
     Route: 048
     Dates: start: 20030101, end: 20071101
  2. SEROQUEL [Suspect]
     Indication: DEPRESSION
     Route: 048
     Dates: start: 20030101, end: 20071101
  3. CELEXA [Concomitant]
  4. LEXAPRO [Concomitant]
  5. DESYREL [Concomitant]

REACTIONS (2)
  - NERVE INJURY [None]
  - TYPE 2 DIABETES MELLITUS [None]
